FAERS Safety Report 22064303 (Version 1)
Quarter: 2023Q1

REPORT INFORMATION
  Report Type: Spontaneous
  Country: AU (occurrence: AU)
  Receive Date: 20230306
  Receipt Date: 20230306
  Transmission Date: 20230418
  Serious: Yes (Other)
  Sender: FDA-Public Use
  Company Number: AU-PFIZER INC-202300088248

PATIENT
  Age: 17 Year
  Sex: Female

DRUGS (1)
  1. PRISTIQ EXTENDED-RELEASE [Suspect]
     Active Substance: DESVENLAFAXINE SUCCINATE
     Dosage: 150 MG

REACTIONS (7)
  - Suicidal ideation [Unknown]
  - Delusion [Unknown]
  - Agitation [Unknown]
  - Anger [Unknown]
  - Crying [Unknown]
  - Off label use [Unknown]
  - Intentional product use issue [Unknown]
